FAERS Safety Report 9417667 (Version 3)
Quarter: 2013Q3

REPORT INFORMATION
  Report Type: Spontaneous
  Country: JP (occurrence: JP)
  Receive Date: 20130724
  Receipt Date: 20130812
  Transmission Date: 20140515
  Serious: Yes (Hospitalization, Other)
  Sender: FDA-Public Use
  Company Number: JP-PFIZER INC-2013182755

PATIENT
  Age: 89 Year
  Sex: Female

DRUGS (1)
  1. CABASER [Suspect]
     Indication: PARKINSON^S DISEASE
     Dosage: 1 MG, 2X/DAY (IN THE MORNING AND IN THE EVENING)
     Route: 048

REACTIONS (6)
  - Femoral neck fracture [Recovered/Resolved]
  - Gait disturbance [Unknown]
  - Dizziness [Unknown]
  - Fall [Unknown]
  - Pneumonia [Recovered/Resolved]
  - Asthenia [Recovered/Resolved]
